FAERS Safety Report 6534366-3 (Version None)
Quarter: 2010Q1

REPORT INFORMATION
  Report Type: 
  Country: None (occurrence: None)
  Receive Date: 20100112
  Receipt Date: 20100104
  Transmission Date: 20100710
  Serious: Yes (Death)
  Sender: FDA-Public Use
  Company Number: US-PFIZER INC-2010001288

PATIENT
  Age: 47 Year
  Sex: Female

DRUGS (7)
  1. ALPRAZOLAM [Suspect]
     Route: 048
  2. HYDROXYZINE PAMOATE [Suspect]
     Route: 048
  3. MIRTAZAPINE [Suspect]
     Route: 048
  4. PREGABALIN [Suspect]
     Route: 048
  5. LEVOTHYROXINE SODIUM [Suspect]
     Route: 048
  6. BACLOFEN [Suspect]
     Route: 048
  7. ACETAMINOPHEN/BUTALBITAL [Suspect]
     Route: 048

REACTIONS (1)
  - COMPLETED SUICIDE [None]
